FAERS Safety Report 24830969 (Version 2)
Quarter: 2025Q1

REPORT INFORMATION
  Report Type: Report from Study
  Country: US (occurrence: US)
  Receive Date: 20250110
  Receipt Date: 20250121
  Transmission Date: 20250408
  Serious: Yes (Hospitalization, Other)
  Sender: Pyros Pharmaceuticals
  Company Number: US-PYROS PHARMACEUTICALS, INC-2024-PYROS-US000187

PATIENT
  Age: 0 Year
  Sex: Male
  Weight: 11.79 kg

DRUGS (12)
  1. VIGAFYDE [Suspect]
     Active Substance: VIGABATRIN
     Indication: Infantile spasms
     Dosage: 250 MG (2.5 ML), BID
     Route: 048
     Dates: start: 20241218, end: 20241220
  2. VIGAFYDE [Suspect]
     Active Substance: VIGABATRIN
     Dosage: 550 MG (5.5 ML), BID
     Route: 048
     Dates: start: 20241221, end: 20241223
  3. VIGAFYDE [Suspect]
     Active Substance: VIGABATRIN
     Dosage: 850 MG (8.5 ML), BID
     Route: 048
     Dates: start: 20241224
  4. PREDNISONE [Suspect]
     Active Substance: PREDNISONE
     Indication: Product used for unknown indication
     Dosage: 20 MG, TID
     Route: 065
     Dates: end: 202412
  5. PREDNISONE [Suspect]
     Active Substance: PREDNISONE
     Dosage: 20 MG, BID
     Route: 065
     Dates: start: 202412, end: 20250103
  6. PREDNISONE [Suspect]
     Active Substance: PREDNISONE
     Dosage: 20 MG, DAILY
     Route: 065
     Dates: start: 20250104, end: 20250110
  7. CLONIDINE [Concomitant]
     Active Substance: CLONIDINE
     Indication: Product used for unknown indication
     Route: 065
  8. DIAZEPAM [Concomitant]
     Active Substance: DIAZEPAM
     Indication: Product used for unknown indication
     Route: 065
  9. Poly Vi Sol [Concomitant]
     Indication: Product used for unknown indication
     Route: 065
  10. MIRALAX [Concomitant]
     Active Substance: POLYETHYLENE GLYCOL 3350
     Indication: Product used for unknown indication
     Route: 065
  11. SODIUM BICARBONATE [Concomitant]
     Active Substance: SODIUM BICARBONATE
     Indication: Product used for unknown indication
     Route: 065
     Dates: end: 20250109
  12. GABAPENTIN [Concomitant]
     Active Substance: GABAPENTIN
     Indication: Product used for unknown indication
     Route: 065

REACTIONS (6)
  - Seizure [Not Recovered/Not Resolved]
  - Condition aggravated [Recovering/Resolving]
  - Anger [Recovering/Resolving]
  - Drug ineffective [Not Recovered/Not Resolved]
  - Insomnia [Recovering/Resolving]
  - Intentional product use issue [Not Recovered/Not Resolved]

NARRATIVE: CASE EVENT DATE: 20241201
